APPROVED DRUG PRODUCT: ARMONAIR DIGIHALER
Active Ingredient: FLUTICASONE PROPIONATE
Strength: 0.113MG/INH
Dosage Form/Route: POWDER;INHALATION
Application: N208798 | Product #005
Applicant: TEVA PHARMACEUTICAL INDUSTRIES LTD
Approved: Feb 20, 2020 | RLD: Yes | RS: No | Type: DISCN

PATENTS:
Patent 11344685 | Expires: Sep 26, 2039
Patent 10195375 | Expires: Feb 14, 2031
Patent 11969544 | Expires: Aug 20, 2039
Patent 11173259 | Expires: Jul 6, 2040
Patent 10918816 | Expires: Dec 14, 2035
Patent 10918816*PED | Expires: Jun 14, 2036
Patent 11173259*PED | Expires: Jan 6, 2041
Patent 11344685*PED | Expires: Mar 26, 2040
Patent 10195375*PED | Expires: Aug 14, 2031
Patent 11969544*PED | Expires: Feb 20, 2040